FAERS Safety Report 16388681 (Version 1)
Quarter: 2019Q3

REPORT INFORMATION
  Report Type: Spontaneous
  Country: US (occurrence: US)
  Receive Date: 20190602
  Receipt Date: 20190602
  Transmission Date: 20191004
  Serious: Yes (Disabling)
  Sender: FDA-Public Use
  Company Number: None

PATIENT
  Age: 60 Year
  Sex: Female
  Weight: 52.65 kg

DRUGS (7)
  1. VITAMIN C [Concomitant]
     Active Substance: ASCORBIC ACID
  2. CITRICAL [Concomitant]
     Active Substance: CALCIUM CITRATE
  3. G2 GATORADE [Concomitant]
  4. VITAMIN D3 [Concomitant]
     Active Substance: CHOLECALCIFEROL
  5. NORTHERA WAIST HIGH 20/30 COMPRESSION HOSE POTASSIUM MIRILAX [Concomitant]
  6. BONIVA [Suspect]
     Active Substance: IBANDRONATE SODIUM
     Indication: OSTEOPOROSIS
     Dosage: ?          QUANTITY:1 INJECTION(S);OTHER FREQUENCY:ONCE EVERY 3 MONTH;?
     Route: 042
     Dates: start: 20190405, end: 20190405
  7. OMINARIS    NASAL SPRAY [Concomitant]

REACTIONS (12)
  - Chest pain [None]
  - Ocular hyperaemia [None]
  - Back pain [None]
  - Musculoskeletal pain [None]
  - Arthralgia [None]
  - Chills [None]
  - Headache [None]
  - Rash [None]
  - Pyrexia [None]
  - Diarrhoea [None]
  - Faecaloma [None]
  - Nausea [None]

NARRATIVE: CASE EVENT DATE: 20190513
